FAERS Safety Report 10381432 (Version 1)
Quarter: 2014Q3

REPORT INFORMATION
  Report Type: Spontaneous
  Country: US (occurrence: None)
  Receive Date: 20140812
  Receipt Date: 20140812
  Transmission Date: 20150326
  Serious: Yes (Other)
  Sender: FDA-Public Use
  Company Number: None

PATIENT
  Age: 40 Year
  Sex: Female

DRUGS (1)
  1. HUMIRA [Suspect]
     Active Substance: ADALIMUMAB
     Indication: RHEUMATOID ARTHRITIS
     Dosage: SUBCUTANEOUS  INJECTABLE  EVER 2 WEEKS
     Route: 058
     Dates: start: 20121218

REACTIONS (3)
  - Incorrect product storage [None]
  - Contusion [None]
  - Injection site bruising [None]

NARRATIVE: CASE EVENT DATE: 20140807
